FAERS Safety Report 17198315 (Version 1)
Quarter: 2019Q4

REPORT INFORMATION
  Report Type: Spontaneous
  Country: US (occurrence: US)
  Receive Date: 20191225
  Receipt Date: 20191225
  Transmission Date: 20200122
  Serious: Yes (Hospitalization, Other)
  Sender: FDA-Public Use
  Company Number: US-HIKMA PHARMACEUTICALS USA INC.-US-H14001-19-06198

PATIENT
  Age: 78 Year
  Sex: Male

DRUGS (1)
  1. HEPARIN [Suspect]
     Active Substance: HEPARIN SODIUM
     Indication: ARTERIAL INJURY
     Route: 041

REACTIONS (3)
  - Respiratory distress [Unknown]
  - Haematoma [Recovered/Resolved]
  - Respiratory tract oedema [Unknown]
